FAERS Safety Report 8086789-1 (Version None)
Quarter: 2012Q1

REPORT INFORMATION
  Report Type: 
  Country: None (occurrence: None)
  Receive Date: 20120128
  Receipt Date: 20110516
  Transmission Date: 20120608
  Serious: No
  Sender: FDA-Public Use
  Company Number: US-ABBOTT-11P-163-0726858-00

PATIENT
  Age: 73 Year
  Sex: Female

DRUGS (5)
  1. HUMIRA [Suspect]
     Dates: end: 20030101
  2. PLAQUENIL [Concomitant]
     Indication: PROPHYLAXIS
     Dosage: 200 MG DAILY
     Route: 048
  3. PREDNISONE TAB [Concomitant]
     Indication: RHEUMATOID ARTHRITIS
     Dosage: 2.5 MG DAILY
     Route: 048
  4. HUMIRA [Suspect]
     Indication: RHEUMATOID ARTHRITIS
     Dates: start: 20090101, end: 20100101
  5. HUMIRA [Suspect]
     Indication: RHEUMATOID ARTHRITIS
     Dates: start: 20110101

REACTIONS (6)
  - MUSCULOSKELETAL STIFFNESS [None]
  - SWELLING [None]
  - INJECTION SITE PAIN [None]
  - RHEUMATOID FACTOR INCREASED [None]
  - PAIN [None]
  - SKIN MASS [None]
